FAERS Safety Report 8812602 (Version 2)
Quarter: 2012Q4

REPORT INFORMATION
  Report Type: 
  Country: AR (occurrence: AR)
  Receive Date: 20120927
  Receipt Date: 20121003
  Transmission Date: 20130627
  Serious: Yes (Hospitalization)
  Sender: FDA-Public Use
  Company Number: AR-PFIZER INC-2012233786

PATIENT
  Age: 16 Year
  Sex: Male

DRUGS (2)
  1. GENOTROPIN [Suspect]
     Indication: GROWTH HORMONE DEFICIENCY
     Dosage: more than 2 mg, 7 injections/week
     Route: 058
     Dates: start: 20120101
  2. LEVOTHYROXINE [Concomitant]
     Dosage: UNK

REACTIONS (2)
  - Hypertension [Recovered/Resolved]
  - Nervousness [Recovered/Resolved]
